FAERS Safety Report 6138980-9 (Version None)
Quarter: 2009Q1

REPORT INFORMATION
  Report Type: 
  Country: None (occurrence: None)
  Receive Date: 20090326
  Receipt Date: 20090313
  Transmission Date: 20090719
  Serious: Yes (Hospitalization, Other)
  Sender: FDA-Public Use
  Company Number: THYM-1000924

PATIENT
  Age: 43 Year
  Sex: Female
  Weight: 92.4 kg

DRUGS (6)
  1. THYMOGLOBULIN (ANTI-THYMOCYTE GLOBULIN (RABBIT) POWDER FOR SOLUTION FO [Suspect]
     Indication: RENAL TRANSPLANT
     Dosage: 125 MG, INTRAVENOUS
     Route: 042
     Dates: start: 20090210, end: 20090218
  2. VELCADE [Suspect]
     Indication: RENAL TRANSPLANT
  3. RITUXIMAB (RITUXIMAB) [Suspect]
     Indication: RENAL TRANSPLANT
  4. MYCOPHENOLATE MOFETIL [Concomitant]
  5. PROGRAF [Concomitant]
  6. PREDNISONE TAB [Concomitant]

REACTIONS (6)
  - CULTURE WOUND POSITIVE [None]
  - KIDNEY TRANSPLANT REJECTION [None]
  - KLEBSIELLA INFECTION [None]
  - RENAL TUBULAR NECROSIS [None]
  - WHITE BLOOD CELL COUNT INCREASED [None]
  - WOUND INFECTION [None]
